FAERS Safety Report 4958723-1 (Version None)
Quarter: 2006Q1

REPORT INFORMATION
  Report Type: 
  Country: None (occurrence: None)
  Receive Date: 20060330
  Receipt Date: 20051109
  Transmission Date: 20060701
  Serious: Yes (Hospitalization, Disabling)
  Sender: FDA-Public Use
  Company Number: US-MERCK-0511USA01572

PATIENT
  Age: 74 Year
  Sex: Female
  Weight: 73 kg

DRUGS (2)
  1. VIOXX [Suspect]
     Indication: ARTHRALGIA
     Route: 048
     Dates: start: 20010613, end: 20040211
  2. ASPIRIN [Concomitant]
     Indication: PAIN
     Route: 065

REACTIONS (17)
  - BLADDER DISORDER [None]
  - CEREBRAL HAEMORRHAGE [None]
  - CONVULSION [None]
  - DEMENTIA [None]
  - DRUG HYPERSENSITIVITY [None]
  - GASTROOESOPHAGEAL REFLUX DISEASE [None]
  - HEADACHE [None]
  - HEARING DISABILITY [None]
  - HYPERTENSION [None]
  - MONARTHRITIS [None]
  - NECK PAIN [None]
  - OEDEMA PERIPHERAL [None]
  - OSTEOARTHRITIS [None]
  - RESPIRATORY FAILURE [None]
  - STRESS FRACTURE [None]
  - THYROID DISORDER [None]
  - ULCER [None]
